FAERS Safety Report 11927302 (Version 2)
Quarter: 2016Q1

REPORT INFORMATION
  Report Type: Report from Study
  Country: US (occurrence: US)
  Receive Date: 20160119
  Receipt Date: 20160329
  Transmission Date: 20160526
  Serious: Yes (Hospitalization, Other)
  Sender: FDA-Public Use
  Company Number: US-BAYER-2014-101170

PATIENT
  Age: 83 Year
  Sex: Female
  Weight: 54.88 kg

DRUGS (6)
  1. ADEMPAS [Suspect]
     Active Substance: RIOCIGUAT
     Indication: COR PULMONALE CHRONIC
     Dosage: 1.5 MG, TID
     Route: 048
     Dates: start: 20140412
  2. ADEMPAS [Suspect]
     Active Substance: RIOCIGUAT
     Indication: PULMONARY HYPERTENSION
     Dosage: 1.5 MG, TID
     Route: 048
     Dates: start: 20140312
  3. ADEMPAS [Suspect]
     Active Substance: RIOCIGUAT
     Indication: COR PULMONALE CHRONIC
     Dosage: 1.5 MG, TID
     Route: 048
     Dates: start: 20150120
  4. COUMADIN [Concomitant]
     Active Substance: WARFARIN SODIUM
  5. ADEMPAS [Suspect]
     Active Substance: RIOCIGUAT
     Indication: COR PULMONALE CHRONIC
     Dosage: UNK
     Dates: start: 20141203
  6. ADEMPAS [Suspect]
     Active Substance: RIOCIGUAT
     Indication: COR PULMONALE CHRONIC
     Dosage: 1.5 MG, TID
     Route: 048

REACTIONS (13)
  - Gastroenteritis viral [Unknown]
  - Dizziness [None]
  - Fall [None]
  - Head injury [Unknown]
  - Dyspnoea [Unknown]
  - Hospitalisation [Unknown]
  - Fall [None]
  - Hypotension [None]
  - Nausea [Unknown]
  - Syncope [Unknown]
  - Syncope [None]
  - Pain in extremity [None]
  - Fall [Unknown]

NARRATIVE: CASE EVENT DATE: 20150202
